FAERS Safety Report 21577507 (Version 1)
Quarter: 2022Q4

REPORT INFORMATION
  Report Type: Spontaneous
  Country: US (occurrence: None)
  Receive Date: 20221109
  Receipt Date: 20221109
  Transmission Date: 20230113
  Serious: Yes (Other)
  Sender: FDA-Public Use
  Company Number: None

PATIENT
  Age: 60 Year
  Sex: Female
  Weight: 53.1 kg

DRUGS (3)
  1. PAXLOVID [Suspect]
     Active Substance: NIRMATRELVIR\RITONAVIR
     Indication: COVID-19
     Dosage: FREQUENCY : TWICE A DAY;?
     Route: 048
     Dates: start: 20221108, end: 20221109
  2. RITUXAN [Concomitant]
     Active Substance: RITUXIMAB
  3. VITAMIN D [Concomitant]
     Active Substance: VITAMIN D NOS

REACTIONS (6)
  - Abdominal pain upper [None]
  - Muscle spasms [None]
  - Dizziness [None]
  - Diarrhoea [None]
  - Hyperhidrosis [None]
  - Syncope [None]

NARRATIVE: CASE EVENT DATE: 20221109
